FAERS Safety Report 21891730 (Version 1)
Quarter: 2023Q1

REPORT INFORMATION
  Report Type: Spontaneous
  Country: IN (occurrence: None)
  Receive Date: 20230120
  Receipt Date: 20230120
  Transmission Date: 20230417
  Serious: Yes (Other)
  Sender: FDA-Public Use
  Company Number: None

PATIENT
  Age: 31 Year
  Sex: Male
  Weight: 64 kg

DRUGS (1)
  1. FINASTERIDE [Suspect]
     Active Substance: FINASTERIDE
     Indication: Alopecia
     Dates: start: 20220415, end: 20220815

REACTIONS (4)
  - Libido decreased [None]
  - Testicular atrophy [None]
  - Erectile dysfunction [None]
  - Suicidal ideation [None]

NARRATIVE: CASE EVENT DATE: 20221105
